FAERS Safety Report 15081140 (Version 1)
Quarter: 2018Q2

REPORT INFORMATION
  Report Type: Spontaneous
  Country: FR (occurrence: FR)
  Receive Date: 20180628
  Receipt Date: 20180628
  Transmission Date: 20180711
  Serious: Yes (Hospitalization)
  Sender: FDA-Public Use
  Company Number: FR-B.I. PHARMACEUTICALS,INC./RIDGEFIELD-2018-12-002129

PATIENT
  Age: 57 Year
  Sex: Female

DRUGS (4)
  1. CELEBREX [Suspect]
     Active Substance: CELECOXIB
     Indication: OSTEOARTHRITIS
     Route: 048
     Dates: end: 201506
  2. IPERTEN [Suspect]
     Active Substance: MANIDIPINE
     Indication: PRODUCT USED FOR UNKNOWN INDICATION
     Route: 048
     Dates: end: 201506
  3. TRAMADOL BASE [Suspect]
     Active Substance: TRAMADOL
     Indication: OSTEOARTHRITIS
     Route: 048
     Dates: end: 201506
  4. MICARDIS [Suspect]
     Active Substance: TELMISARTAN
     Indication: HYPERTENSION
     Route: 048
     Dates: end: 201506

REACTIONS (1)
  - Bone marrow failure [Not Recovered/Not Resolved]

NARRATIVE: CASE EVENT DATE: 20180512
